FAERS Safety Report 11269177 (Version 2)
Quarter: 2015Q3

REPORT INFORMATION
  Report Type: Spontaneous
  Country: US (occurrence: None)
  Receive Date: 20150710
  Receipt Date: 20150713
  Transmission Date: 20151125
  Serious: Yes (Other)
  Sender: FDA-Public Use
  Company Number: US2015082942

PATIENT
  Sex: Female

DRUGS (1)
  1. SENSODYNE COMPLETE PROTECTION [Suspect]
     Active Substance: STANNOUS FLUORIDE
     Indication: SENSITIVITY OF TEETH
     Route: 004
     Dates: start: 201505, end: 20150611

REACTIONS (8)
  - Adverse event [None]
  - Cough [None]
  - Aphasia [None]
  - Dyspnoea [None]
  - Throat irritation [None]
  - Pharyngeal oedema [None]
  - Dysphagia [None]
  - Throat tightness [None]

NARRATIVE: CASE EVENT DATE: 20150611
